FAERS Safety Report 4854077-X (Version None)
Quarter: 2005Q4

REPORT INFORMATION
  Report Type: 
  Country: None (occurrence: None)
  Receive Date: 20051213
  Receipt Date: 20051128
  Transmission Date: 20060501
  Serious: No
  Sender: FDA-Public Use
  Company Number: US_0507119901

PATIENT
  Age: 44 Year
  Sex: Female
  Weight: 92.5 kg

DRUGS (7)
  1. ZYPREXA [Suspect]
     Indication: BIPOLAR DISORDER
     Dosage: SEE IMAGE
     Route: 048
     Dates: start: 20030508, end: 20030709
  2. ZYPREXA [Suspect]
     Indication: BIPOLAR DISORDER
     Dosage: SEE IMAGE
     Route: 048
     Dates: start: 20030709, end: 20040817
  3. ATACAND D             (CANAESARTAN CILEXTIL, HYDROCHLOROTHIAZIDE) [Concomitant]
  4. AMBIEN [Concomitant]
  5. LIPITOR [Concomitant]
  6. PREMARIN [Concomitant]
  7. ZOLOFT [Concomitant]

REACTIONS (14)
  - ABDOMINAL PAIN [None]
  - DIABETES MELLITUS NON-INSULIN-DEPENDENT [None]
  - FATIGUE [None]
  - HAEMATOCHEZIA [None]
  - HAEMORRHOIDS [None]
  - HUNGER [None]
  - PARAESTHESIA [None]
  - POLLAKIURIA [None]
  - RECTAL HAEMORRHAGE [None]
  - SENSORY LOSS [None]
  - VISION BLURRED [None]
  - VOMITING [None]
  - WEIGHT DECREASED [None]
  - WEIGHT INCREASED [None]
